FAERS Safety Report 7438808-0 (Version None)
Quarter: 2011Q2

REPORT INFORMATION
  Report Type: 
  Country: None (occurrence: None)
  Receive Date: 20110426
  Receipt Date: 20110412
  Transmission Date: 20111010
  Serious: Yes (Other)
  Sender: FDA-Public Use
  Company Number: CL-WATSON-2011-05629

PATIENT
  Age: 75 Year
  Sex: Female

DRUGS (2)
  1. SERTRALINE HYDROCHLORIDE [Suspect]
     Indication: DEPRESSION
     Dosage: 50 MG, DAILY
     Route: 065
  2. SERTRALINE HYDROCHLORIDE [Suspect]
     Dosage: 25 MG, DAILY
     Route: 065

REACTIONS (4)
  - DYSARTHRIA [None]
  - PARKINSONISM [None]
  - BRUXISM [None]
  - NEUROLEPTIC MALIGNANT SYNDROME [None]
